FAERS Safety Report 25087572 (Version 1)
Quarter: 2025Q1

REPORT INFORMATION
  Report Type: Report from Study
  Country: US (occurrence: US)
  Receive Date: 20250318
  Receipt Date: 20250318
  Transmission Date: 20250408
  Serious: Yes (Death, Other)
  Sender: ACADIA PHARMACEUTICALS
  Company Number: US-ACADIA PHARMACEUTICALS INC.-ACA-2025-PIM-002827

PATIENT
  Sex: Male

DRUGS (10)
  1. NUPLAZID [Suspect]
     Active Substance: PIMAVANSERIN TARTRATE
     Indication: Parkinson^s disease
     Dosage: 20 MILLIGRAM, QD (2 TABLETS AT BEDTIME)
     Route: 048
     Dates: start: 20230225
  2. BETHANECHOL [Concomitant]
     Active Substance: BETHANECHOL
  3. CARBIDOPA\LEVODOPA [Concomitant]
     Active Substance: CARBIDOPA\LEVODOPA
  4. DONEPEZIL [Concomitant]
     Active Substance: DONEPEZIL
  5. FUROSEMIDE [Concomitant]
     Active Substance: FUROSEMIDE
  6. LOVASTATIN [Concomitant]
     Active Substance: LOVASTATIN
  7. MEMANTINE [Concomitant]
     Active Substance: MEMANTINE
  8. METOPROLOL SUCCINATE [Concomitant]
     Active Substance: METOPROLOL SUCCINATE
  9. ONGENTYS [Concomitant]
     Active Substance: OPICAPONE
  10. TERAZOSIN [Concomitant]
     Active Substance: TERAZOSIN HYDROCHLORIDE

REACTIONS (2)
  - Death [Fatal]
  - Incorrect dosage administered [Unknown]
